FAERS Safety Report 6490734-X (Version None)
Quarter: 2009Q4

REPORT INFORMATION
  Report Type: 
  Country: None (occurrence: None)
  Receive Date: 20091211
  Receipt Date: 20091202
  Transmission Date: 20100525
  Serious: Yes (Hospitalization)
  Sender: FDA-Public Use
  Company Number: SE-SANOFI-AVENTIS-2009SA005910

PATIENT
  Age: 1 Day
  Sex: Male

DRUGS (9)
  1. STILNOCT [Suspect]
     Indication: DEPRESSION
     Route: 064
     Dates: end: 20090904
  2. STILNOCT [Suspect]
     Indication: PANIC DISORDER
     Route: 064
     Dates: end: 20090904
  3. STILNOCT [Suspect]
     Route: 064
     Dates: end: 20090904
  4. ANAFRANIL [Suspect]
     Indication: DEPRESSION
     Route: 064
     Dates: end: 20090904
  5. ANAFRANIL [Suspect]
     Indication: PANIC DISORDER
     Route: 064
     Dates: end: 20090904
  6. ANAFRANIL [Suspect]
     Route: 064
     Dates: end: 20090904
  7. LERGIGAN FORTE [Suspect]
     Indication: DEPRESSION
     Route: 064
     Dates: end: 20090904
  8. LERGIGAN FORTE [Suspect]
     Indication: PANIC DISORDER
     Route: 064
     Dates: end: 20090904
  9. LERGIGAN FORTE [Suspect]
     Route: 064
     Dates: end: 20090904

REACTIONS (4)
  - BRADYCARDIA NEONATAL [None]
  - DRUG EXPOSURE DURING PREGNANCY [None]
  - INFANTILE APNOEIC ATTACK [None]
  - OXYGEN SATURATION DECREASED [None]
